FAERS Safety Report 16425455 (Version 4)
Quarter: 2021Q3

REPORT INFORMATION
  Report Type: Spontaneous
  Country: US (occurrence: US)
  Receive Date: 20190613
  Receipt Date: 20210923
  Transmission Date: 20211014
  Serious: Yes (Life-Threatening, Hospitalization)
  Sender: FDA-Public Use
  Company Number: US-TEVA-2019-US-1061415

PATIENT
  Age: 14 Year
  Sex: Male
  Weight: 73 kg

DRUGS (4)
  1. FENTANYL. [Suspect]
     Active Substance: FENTANYL
     Indication: PRODUCT USED FOR UNKNOWN INDICATION
     Dosage: 50 MICROG/HOUR
     Route: 041
  2. FENTANYL. [Interacting]
     Active Substance: FENTANYL
     Route: 040
  3. BUPROPION. [Interacting]
     Active Substance: BUPROPION
     Indication: OVERDOSE
     Dosage: NO MORE THAN 30 IMMEDIATE?RELEASE TABLETS?BUPROPION: 75 MG; ADDITIONAL INFO: OVERDOSE
     Route: 048
  4. BUPROPION. [Interacting]
     Active Substance: BUPROPION
     Indication: SUICIDE ATTEMPT

REACTIONS (5)
  - Drug interaction [Unknown]
  - Status epilepticus [Recovered/Resolved]
  - Serotonin syndrome [Recovering/Resolving]
  - Overdose [Unknown]
  - Suicide attempt [Recovered/Resolved]
